FAERS Safety Report 17652347 (Version 1)
Quarter: 2020Q2

REPORT INFORMATION
  Report Type: Report from Study
  Country: US (occurrence: US)
  Receive Date: 20200409
  Receipt Date: 20200409
  Transmission Date: 20200713
  Serious: Yes (Death, Hospitalization, Other)
  Sender: FDA-Public Use
  Company Number: US-BAYER-2020-038449

PATIENT
  Age: 47 Year
  Sex: Male

DRUGS (3)
  1. ADEMPAS [Suspect]
     Active Substance: RIOCIGUAT
     Indication: PULMONARY HYPERTENSION
     Dosage: 0.5 MG
     Dates: end: 20200303
  2. UPTRAVI [Concomitant]
     Active Substance: SELEXIPAG
     Dosage: UNK
  3. ADEMPAS [Suspect]
     Active Substance: RIOCIGUAT
     Indication: PULMONARY HYPERTENSION
     Dosage: 0.5 MG, TID
     Route: 048
     Dates: start: 20200212, end: 20200225

REACTIONS (7)
  - Death [Fatal]
  - Incorrect product administration duration [None]
  - Hallucination [Unknown]
  - Syncope [None]
  - Pneumonia [None]
  - Mental disorder [None]
  - Incorrect product administration duration [None]

NARRATIVE: CASE EVENT DATE: 2020
